FAERS Safety Report 13666998 (Version 1)
Quarter: 2017Q2

REPORT INFORMATION
  Report Type: Spontaneous
  Country: US (occurrence: US)
  Receive Date: 20170619
  Receipt Date: 20170619
  Transmission Date: 20170830
  Serious: No
  Sender: FDA-Public Use
  Company Number: US-ROCHE-1295236

PATIENT
  Sex: Female

DRUGS (1)
  1. XELODA [Suspect]
     Active Substance: CAPECITABINE
     Indication: PRODUCT USED FOR UNKNOWN INDICATION
     Route: 065

REACTIONS (7)
  - Lip exfoliation [Unknown]
  - Throat irritation [Unknown]
  - Burning sensation [Unknown]
  - Dyschezia [Unknown]
  - Generalised erythema [Unknown]
  - Oropharyngeal pain [Unknown]
  - Peripheral swelling [Unknown]
